FAERS Safety Report 7470666-0 (Version None)
Quarter: 2011Q2

REPORT INFORMATION
  Report Type: 
  Country: None (occurrence: None)
  Receive Date: 20110510
  Receipt Date: 20110426
  Transmission Date: 20111010
  Serious: No
  Sender: FDA-Public Use
  Company Number: US-B.I. PHARMACEUTICALS,INC./RIDGEFIELD-2011-BP-11815BP

PATIENT
  Age: 59 Year
  Sex: Male

DRUGS (9)
  1. SPIRIVA [Suspect]
     Indication: CHRONIC OBSTRUCTIVE PULMONARY DISEASE
     Dosage: 18 MCG
     Route: 055
     Dates: start: 20040101
  2. IRON SUPP [Concomitant]
     Indication: PROPHYLAXIS
     Route: 048
  3. WARFARIN [Concomitant]
     Indication: PULMONARY EMBOLISM
     Route: 048
  4. FOLIC ACID [Concomitant]
     Indication: PROPHYLAXIS
     Route: 048
     Dates: start: 20070101
  5. VIT C [Concomitant]
     Indication: PROPHYLAXIS
     Dosage: 250 MG
     Route: 048
     Dates: start: 20090101
  6. M.V.I. [Concomitant]
     Indication: PROPHYLAXIS
     Route: 048
  7. TOPROL-XL [Concomitant]
     Indication: CARDIOMEGALY
     Dosage: 50 MG
     Route: 048
     Dates: start: 20090101
  8. FISH OIL [Concomitant]
     Indication: PROPHYLAXIS
     Route: 048
     Dates: start: 20080101
  9. MICARDIS [Concomitant]
     Indication: CARDIOMEGALY
     Route: 048
     Dates: start: 20090101

REACTIONS (2)
  - CATARACT [None]
  - VISUAL IMPAIRMENT [None]
